FAERS Safety Report 7107473-4 (Version None)
Quarter: 2010Q4

REPORT INFORMATION
  Report Type: 
  Country: None (occurrence: None)
  Receive Date: 20101112
  Receipt Date: 20101028
  Transmission Date: 20110411
  Serious: Yes (Other)
  Sender: FDA-Public Use
  Company Number: AUR-APL-2010-02705

PATIENT
  Sex: Male

DRUGS (4)
  1. BISOPROLOL FUMARATE [Suspect]
     Dosage: 10MG-DAILY-ORAL
     Route: 048
  2. SIMVASTATIN [Suspect]
  3. FLECAINIDE ACETATE [Suspect]
     Dosage: 110MG, DAILY
  4. TRITACE [Suspect]
     Indication: HYPERTENSION
     Dosage: 5MG, DAILY, ORAL
     Route: 048
     Dates: start: 20100501

REACTIONS (2)
  - ATRIAL FIBRILLATION [None]
  - DRUG INTERACTION [None]
